FAERS Safety Report 4719138-4 (Version None)
Quarter: 2005Q3

REPORT INFORMATION
  Report Type: 
  Country: None (occurrence: None)
  Receive Date: 20050719
  Receipt Date: 20050630
  Transmission Date: 20060218
  Serious: Yes (Hospitalization, Other)
  Sender: FDA-Public Use
  Company Number: 2005099914

PATIENT
  Age: 36 Year
  Sex: Male

DRUGS (1)
  1. ZYRTEC [Suspect]
     Indication: HYPERSENSITIVITY
     Dosage: 10 MG (1 D), ORAL
     Route: 048
     Dates: start: 20050525, end: 20050526

REACTIONS (1)
  - GRAND MAL CONVULSION [None]
